FAERS Safety Report 11914293 (Version 1)
Quarter: 2016Q1

REPORT INFORMATION
  Report Type: Spontaneous
  Country: TW (occurrence: TW)
  Receive Date: 20160113
  Receipt Date: 20160113
  Transmission Date: 20160526
  Serious: Yes (Other)
  Sender: FDA-Public Use
  Company Number: TW-FRESENIUS KABI-FK201600177

PATIENT
  Sex: Female

DRUGS (6)
  1. HYDROXYCHLOROQUINE [Suspect]
     Active Substance: HYDROXYCHLOROQUINE
     Indication: LIP AND/OR ORAL CAVITY CANCER
  2. METHOTREXATE (MANUFACTURER UNKNOWN) [Suspect]
     Active Substance: METHOTREXATE
     Indication: LIP AND/OR ORAL CAVITY CANCER
     Route: 048
  3. CYCLOPHOSPHAMIDE. [Suspect]
     Active Substance: CYCLOPHOSPHAMIDE
     Indication: LIP AND/OR ORAL CAVITY CANCER
  4. SIROLIMUS. [Suspect]
     Active Substance: SIROLIMUS
     Indication: LIP AND/OR ORAL CAVITY CANCER
  5. CISPLATIN (MANUFACTURER UNKNOWN) [Suspect]
     Active Substance: CISPLATIN
     Indication: LIP AND/OR ORAL CAVITY CANCER
     Route: 042
  6. TEGAFUR/URACIL [Suspect]
     Active Substance: TEGAFUR\URACIL
     Indication: LIP AND/OR ORAL CAVITY CANCER

REACTIONS (1)
  - Cardiotoxicity [Recovered/Resolved]
